FAERS Safety Report 24262806 (Version 1)
Quarter: 2024Q3

REPORT INFORMATION
  Report Type: Spontaneous
  Country: AU (occurrence: AU)
  Receive Date: 20240829
  Receipt Date: 20240829
  Transmission Date: 20241017
  Serious: Yes (Other)
  Sender: MYLAN
  Company Number: AU-MYLANLABS-2024M1078936

PATIENT
  Age: 79 Year
  Sex: Male
  Weight: 128 kg

DRUGS (1)
  1. LYRICA [Suspect]
     Active Substance: PREGABALIN
     Indication: Product used for unknown indication
     Dosage: UNK
     Route: 065
     Dates: start: 20130605, end: 20230531

REACTIONS (5)
  - Delirium [Recovered/Resolved]
  - Psychotic disorder [Unknown]
  - Muscle rigidity [Unknown]
  - Tremor [Unknown]
  - Disturbance in attention [Unknown]

NARRATIVE: CASE EVENT DATE: 20230530
